FAERS Safety Report 5817224-9 (Version None)
Quarter: 2008Q3

REPORT INFORMATION
  Report Type: 
  Country: None (occurrence: None)
  Receive Date: 20080722
  Receipt Date: 20080717
  Transmission Date: 20090109
  Serious: Yes (Hospitalization)
  Sender: FDA-Public Use
  Company Number: US-BRISTOL-MYERS SQUIBB COMPANY-14189336

PATIENT
  Age: 75 Year
  Sex: Female

DRUGS (15)
  1. KENALOG [Suspect]
     Indication: OSTEOARTHRITIS
     Dosage: KENALOG 40MG/ML
     Route: 014
     Dates: start: 20080403
  2. LIDOCAINE [Suspect]
     Indication: OSTEOARTHRITIS
     Dosage: 1 DOSAGE FORM = 3CC OF 1% LIDOCAINE
  3. ASPIRIN [Concomitant]
     Dates: start: 20050815
  4. AVANDIA [Concomitant]
     Dates: start: 20060310
  5. CLARITIN [Concomitant]
     Dosage: TAKE 1 TAB EVERY MORNING PRN
     Dates: start: 20050815
  6. COENZYME Q10 [Concomitant]
     Dosage: DF= CAPSULE
     Dates: start: 20060111
  7. DIAZEPAM [Concomitant]
     Indication: VERTIGO
     Dosage: FOUR TIMES DAILY; PRN
     Dates: start: 20060310
  8. HYDROCHLOROTHIAZIDE [Concomitant]
     Dosage: EVERY MORNING
  9. LEVOTHYROXINE SODIUM [Concomitant]
  10. MIRAPEX [Concomitant]
     Dosage: ONE HS; INCREASE TO 2HS IN 4-7 DAYS; MAY INCRESE TO 3 HS 4-7 DAYS LATER
     Dates: start: 20070502
  11. POTASSIUM CHLORIDE [Concomitant]
     Dosage: TAKEN WITH FOOD
     Dates: start: 20050327
  12. TEMAZEPAM [Concomitant]
     Dosage: AT BED TIME ;PRN
  13. TRAMADOL HCL [Concomitant]
     Indication: PAIN
     Dosage: 1 TAB- 4 TIMES/DAY; PRN
  14. VYTORIN [Concomitant]
     Dosage: DF=  10-40MG TAB; TAKEN IN EVENING
     Dates: start: 20060313
  15. XENICAL [Concomitant]
     Dosage: TAKEN WITH FOOD
     Dates: start: 20060111

REACTIONS (16)
  - ABDOMINAL DISTENSION [None]
  - ASTHENIA [None]
  - BLOOD CALCIUM INCREASED [None]
  - BLOOD GLUCOSE INCREASED [None]
  - BLOOD POTASSIUM DECREASED [None]
  - CONSTIPATION [None]
  - DYSPNOEA [None]
  - GAIT DISTURBANCE [None]
  - HYPERHIDROSIS [None]
  - HYPOAESTHESIA [None]
  - INJECTION SITE REACTION [None]
  - KIDNEY INFECTION [None]
  - MUSCLE SPASMS [None]
  - NAUSEA [None]
  - SENSATION OF HEAVINESS [None]
  - VITAMIN D INCREASED [None]
